FAERS Safety Report 12845237 (Version 3)
Quarter: 2016Q4

REPORT INFORMATION
  Report Type: Spontaneous
  Country: CA (occurrence: CA)
  Receive Date: 20161013
  Receipt Date: 20161101
  Transmission Date: 20170207
  Serious: Yes (Death)
  Sender: FDA-Public Use
  Company Number: CA-PFIZER INC-2016406201

PATIENT
  Age: 42 Year
  Sex: Male

DRUGS (3)
  1. BROMAZEPAM [Suspect]
     Active Substance: BROMAZEPAM
  2. METHADONE [Suspect]
     Active Substance: METHADONE HYDROCHLORIDE
  3. LYRICA [Suspect]
     Active Substance: PREGABALIN
     Dosage: 5 DF, SINGLE

REACTIONS (5)
  - Toxicity to various agents [Fatal]
  - Drug level increased [Fatal]
  - Overdose [Fatal]
  - Lethargy [Unknown]
  - Dysarthria [Unknown]

NARRATIVE: CASE EVENT DATE: 2016
